FAERS Safety Report 25957819 (Version 2)
Quarter: 2025Q4

REPORT INFORMATION
  Report Type: Report from Study
  Country: KR (occurrence: KR)
  Receive Date: 20251024
  Receipt Date: 20251110
  Transmission Date: 20260117
  Serious: Yes (Hospitalization)
  Sender: ABBVIE
  Company Number: KR-ABBVIE-6511021

PATIENT
  Age: 26 Year
  Sex: Male
  Weight: 79 kg

DRUGS (1)
  1. RINVOQ [Suspect]
     Active Substance: UPADACITINIB
     Indication: Dermatitis atopic
     Dosage: MODIFIED-RELEASE FILM-COATED TABLET
     Route: 048
     Dates: start: 20250620

REACTIONS (1)
  - Gastroenteritis bacterial [Recovered/Resolved]

NARRATIVE: CASE EVENT DATE: 20250913
